FAERS Safety Report 9771988 (Version 1)
Quarter: 2013Q4

REPORT INFORMATION
  Report Type: Spontaneous
  Country: MX (occurrence: None)
  Receive Date: 20131002
  Receipt Date: 20131002
  Transmission Date: 20140711
  Serious: Yes (Other)
  Sender: FDA-Public Use
  Company Number: ENTC2013-0251

PATIENT
  Age: 87 Year
  Sex: Female

DRUGS (3)
  1. STALEVO (LEVODOPA, CARBIDOPA, ENTACAPONE) [Suspect]
     Indication: PARKINSON^S DISEASE
     Dosage: 3 DF (150/37.5/200 MG) QD, ORAL
     Route: 048
     Dates: start: 2011
  2. ATEMPERATOR [Concomitant]
  3. SIFROL [Concomitant]

REACTIONS (4)
  - Speech disorder [None]
  - Hearing impaired [None]
  - Parkinson^s disease [None]
  - Disease progression [None]
